FAERS Safety Report 15333974 (Version 3)
Quarter: 2019Q1

REPORT INFORMATION
  Report Type: Report from Study
  Country: US (occurrence: US)
  Receive Date: 20180830
  Receipt Date: 20190222
  Transmission Date: 20190417
  Serious: No
  Sender: FDA-Public Use
  Company Number: PHHY2018US080689

PATIENT
  Age: 50 Year
  Sex: Female

DRUGS (1)
  1. GILENYA [Suspect]
     Active Substance: FINGOLIMOD HYDROCHLORIDE
     Indication: MULTIPLE SCLEROSIS
     Dosage: UNK, QD
     Route: 048

REACTIONS (8)
  - Muscle tightness [Recovered/Resolved]
  - Melanocytic naevus [Unknown]
  - Joint stiffness [Recovered/Resolved]
  - Hepatic enzyme increased [Unknown]
  - Haemangioma [Unknown]
  - Seborrhoeic keratosis [Unknown]
  - Solar lentigo [Unknown]
  - Pain in extremity [Recovered/Resolved]

NARRATIVE: CASE EVENT DATE: 20180330
